FAERS Safety Report 4456378-6 (Version None)
Quarter: 2004Q3

REPORT INFORMATION
  Report Type: 
  Country: None (occurrence: None)
  Receive Date: 20040902
  Receipt Date: 20040608
  Transmission Date: 20050211
  Serious: No
  Sender: FDA-Public Use
  Company Number: 200417545BWH

PATIENT
  Sex: Male

DRUGS (1)
  1. LEVITRA [Suspect]
     Indication: ERECTILE DYSFUNCTION
     Dosage: 10 MG, ONCE, ORAL
     Route: 048
     Dates: start: 20040404

REACTIONS (1)
  - PHARYNGOLARYNGEAL PAIN [None]
